FAERS Safety Report 6738576-1 (Version None)
Quarter: 2010Q2

REPORT INFORMATION
  Report Type: 
  Country: None (occurrence: None)
  Receive Date: 20100524
  Receipt Date: 20100512
  Transmission Date: 20101027
  Serious: Yes (Other)
  Sender: FDA-Public Use
  Company Number: JP-PFIZER INC-2010060688

PATIENT
  Age: 25 Year
  Sex: Female
  Weight: 37 kg

DRUGS (5)
  1. TRIAZOLAM [Suspect]
     Dosage: 0.125 MG, UNK
     Route: 048
  2. SULPIRIDE [Suspect]
     Dosage: 200 MG, UNK
     Route: 048
  3. FLUVOXAMINE MALEATE [Suspect]
     Dosage: 150 MG, UNK
  4. PEROSPIRONE [Suspect]
     Dosage: 4 MG, UNK
     Route: 048
  5. FLUNITRAZEPAM [Suspect]
     Dosage: 2 MG, UNK
     Route: 048

REACTIONS (2)
  - ELECTROCARDIOGRAM QT PROLONGED [None]
  - VENTRICULAR EXTRASYSTOLES [None]
